FAERS Safety Report 5314472-1 (Version None)
Quarter: 2007Q2

REPORT INFORMATION
  Report Type: 
  Country: None (occurrence: None)
  Receive Date: 20070502
  Receipt Date: 20070122
  Transmission Date: 20071010
  Serious: No
  Sender: FDA-Public Use
  Company Number: US-GLAXOSMITHKLINE-A0633216A

PATIENT
  Age: 82 Year
  Sex: Female

DRUGS (1)
  1. AMOXICILLIN [Suspect]
     Indication: TOOTH INFECTION
     Dosage: 500MG VARIABLE DOSE
     Route: 048
     Dates: start: 20061209

REACTIONS (13)
  - ANOREXIA [None]
  - DRUG INEFFECTIVE [None]
  - DYSPNOEA [None]
  - EYELID OEDEMA [None]
  - FATIGUE [None]
  - HEADACHE [None]
  - NAUSEA [None]
  - ORAL MUCOSAL BLISTERING [None]
  - PHARYNGOLARYNGEAL PAIN [None]
  - PYREXIA [None]
  - SWELLING FACE [None]
  - TOOTHACHE [None]
  - URINE OUTPUT DECREASED [None]
